FAERS Safety Report 15636634 (Version 2)
Quarter: 2018Q4

REPORT INFORMATION
  Report Type: Spontaneous
  Country: US (occurrence: US)
  Receive Date: 20181120
  Receipt Date: 20181123
  Transmission Date: 20190205
  Serious: Yes (Death, Hospitalization)
  Sender: FDA-Public Use
  Company Number: US-ASTRAZENECA-2018SF50587

PATIENT
  Sex: Male
  Weight: 119.3 kg

DRUGS (4)
  1. PLAVIX [Concomitant]
     Active Substance: CLOPIDOGREL BISULFATE
  2. BRILINTA [Suspect]
     Active Substance: TICAGRELOR
     Route: 048
  3. ASPIRIN. [Concomitant]
     Active Substance: ASPIRIN
  4. INTEGRILIN [Concomitant]
     Active Substance: EPTIFIBATIDE

REACTIONS (4)
  - Product dose omission [Unknown]
  - Dyspnoea [Unknown]
  - Death [Fatal]
  - Chest pain [Unknown]
